FAERS Safety Report 5271565-5 (Version None)
Quarter: 2007Q1

REPORT INFORMATION
  Report Type: 
  Country: None (occurrence: None)
  Receive Date: 20070321
  Receipt Date: 20070312
  Transmission Date: 20070707
  Serious: Yes (Hospitalization)
  Sender: FDA-Public Use
  Company Number: FR-PFIZER INC-2007019908

PATIENT
  Sex: Male
  Weight: 19.7 kg

DRUGS (8)
  1. GENOTONORM [Suspect]
     Indication: BODY HEIGHT BELOW NORMAL
     Dosage: TEXT:1 MG-FREQ:EVERY DAY
     Route: 058
  2. CORTANCYL [Concomitant]
     Route: 048
  3. ETANERCEPT [Concomitant]
     Route: 058
  4. OMEPRAZOLE [Concomitant]
     Route: 048
  5. APRANAX [Concomitant]
     Route: 048
  6. METHOTREXATE [Concomitant]
     Route: 048
  7. CALCIDOSE [Concomitant]
     Route: 048
  8. ERGOCALCIFEROL [Concomitant]
     Route: 048

REACTIONS (1)
  - INTERMITTENT CLAUDICATION [None]
